FAERS Safety Report 12041279 (Version 1)
Quarter: 2016Q1

REPORT INFORMATION
  Report Type: Report from Study
  Country: US (occurrence: US)
  Receive Date: 20160208
  Receipt Date: 20160208
  Transmission Date: 20160526
  Serious: Yes (Other)
  Sender: FDA-Public Use
  Company Number: US-ABBVIE-15K-163-1530217-00

PATIENT
  Age: 65 Year
  Sex: Female
  Weight: 53.12 kg

DRUGS (2)
  1. HUMIRA [Suspect]
     Active Substance: ADALIMUMAB
     Indication: CROHN^S DISEASE
     Route: 058
     Dates: start: 2010
  2. HUMIRA [Suspect]
     Active Substance: ADALIMUMAB
     Indication: COLITIS ULCERATIVE

REACTIONS (8)
  - Feeding disorder [Recovered/Resolved]
  - Weight decreased [Recovered/Resolved]
  - Myalgia [Recovered/Resolved]
  - Muscle spasms [Recovered/Resolved]
  - Fall [Recovered/Resolved]
  - Ankle fracture [Recovered/Resolved]
  - Post procedural complication [Recovered/Resolved]
  - Influenza like illness [Recovered/Resolved]

NARRATIVE: CASE EVENT DATE: 201506
